FAERS Safety Report 5509525-9 (Version None)
Quarter: 2007Q4

REPORT INFORMATION
  Report Type: 
  Country: None (occurrence: None)
  Receive Date: 20071107
  Receipt Date: 20071031
  Transmission Date: 20080405
  Serious: Yes (Other)
  Sender: FDA-Public Use
  Company Number: GB-PFIZER INC-2007092354

PATIENT
  Sex: Female

DRUGS (2)
  1. GENOTROPIN [Suspect]
     Indication: DRUG ADMINISTRATION ERROR
     Route: 058
  2. GENOTROPIN [Suspect]
     Indication: IN VITRO FERTILISATION

REACTIONS (1)
  - ABORTION SPONTANEOUS [None]
